FAERS Safety Report 21263548 (Version 1)
Quarter: 2022Q3

REPORT INFORMATION
  Report Type: Spontaneous
  Country: US (occurrence: US)
  Receive Date: 20220829
  Receipt Date: 20220829
  Transmission Date: 20221026
  Serious: Yes (Hospitalization)
  Sender: FDA-Public Use
  Company Number: US-SA-SAC20220823001095

PATIENT
  Age: 45 Year
  Sex: Female

DRUGS (1)
  1. AUBAGIO [Suspect]
     Active Substance: TERIFLUNOMIDE
     Indication: Multiple sclerosis
     Dosage: 1 DF, QD
     Route: 048
     Dates: start: 202206, end: 202208

REACTIONS (5)
  - Pyrexia [Unknown]
  - Dehydration [Unknown]
  - Vomiting [Unknown]
  - Myalgia [Unknown]
  - Nausea [Unknown]

NARRATIVE: CASE EVENT DATE: 20220801
